FAERS Safety Report 12759362 (Version 1)
Quarter: 2016Q3

REPORT INFORMATION
  Report Type: Other
  Country: US (occurrence: US)
  Receive Date: 20160919
  Receipt Date: 20160919
  Transmission Date: 20161109
  Serious: Yes (Hospitalization)
  Sender: FDA-Public Use
  Company Number: US-ENDO PHARMACEUTICALS INC-2016-005713

PATIENT
  Age: 61 Year
  Sex: Female

DRUGS (5)
  1. BUPRENORPHINE NALOXONE [Concomitant]
     Active Substance: BUPRENORPHINE\NALOXONE
     Indication: PRODUCT USED FOR UNKNOWN INDICATION
  2. OXYGEN. [Concomitant]
     Active Substance: OXYGEN
     Indication: CHRONIC OBSTRUCTIVE PULMONARY DISEASE
  3. LORAZEPAM TABLETS [Suspect]
     Active Substance: LORAZEPAM
     Indication: ANXIETY
     Route: 065
  4. LORAZEPAM TABLETS [Suspect]
     Active Substance: LORAZEPAM
     Dosage: SCHEDULED LORAZEPAM INITIATED
     Route: 065
  5. LORAZEPAM TABLETS [Suspect]
     Active Substance: LORAZEPAM
     Route: 065

REACTIONS (3)
  - Catatonia [Recovered/Resolved]
  - Drug withdrawal syndrome [Recovered/Resolved]
  - Stress cardiomyopathy [Recovered/Resolved]
